FAERS Safety Report 16030014 (Version 1)
Quarter: 2019Q2

REPORT INFORMATION
  Report Type: Spontaneous
  Country: US (occurrence: US)
  Receive Date: 20190304
  Receipt Date: 20190304
  Transmission Date: 20190711
  Serious: Yes (Disabling)
  Sender: FDA-Public Use
  Company Number: None

PATIENT
  Age: 57 Year
  Weight: 70.76 kg

DRUGS (1)
  1. MRI WITH GADOLINIUM BASED CONTRAST [Suspect]
     Active Substance: GADOLINIUM

REACTIONS (1)
  - Tinnitus [None]

NARRATIVE: CASE EVENT DATE: 20190201
